FAERS Safety Report 20237398 (Version 1)
Quarter: 2021Q4

REPORT INFORMATION
  Report Type: Spontaneous
  Country: ES (occurrence: ES)
  Receive Date: 20211228
  Receipt Date: 20211228
  Transmission Date: 20220303
  Serious: Yes (Hospitalization, Other)
  Sender: FDA-Public Use
  Company Number: None

PATIENT
  Age: 54 Year
  Sex: Female

DRUGS (3)
  1. IBUPROFEN [Suspect]
     Active Substance: IBUPROFEN
     Indication: Pain
     Dosage: UNK
     Route: 065
  2. ACETAMINOPHEN [Suspect]
     Active Substance: ACETAMINOPHEN
     Indication: Pain
     Dosage: UNK
     Route: 065
  3. ERTAPENEM [Concomitant]
     Active Substance: ERTAPENEM
     Indication: Product used for unknown indication
     Dosage: UNK
     Route: 065

REACTIONS (8)
  - Leukocyturia [Recovered/Resolved]
  - Pyrexia [Recovered/Resolved]
  - Proteinuria [Recovered/Resolved]
  - Asthenia [Recovered/Resolved]
  - Normochromic anaemia [Recovered/Resolved]
  - Acute phase reaction [Recovered/Resolved]
  - Decreased appetite [Recovered/Resolved]
  - Tubulointerstitial nephritis [Recovered/Resolved]
